FAERS Safety Report 13611874 (Version 2)
Quarter: 2017Q2

REPORT INFORMATION
  Report Type: Spontaneous
  Country: CN (occurrence: CN)
  Receive Date: 20170605
  Receipt Date: 20170605
  Transmission Date: 20170830
  Serious: Yes (Hospitalization)
  Sender: FDA-Public Use
  Company Number: CN-BAYER-2017-097925

PATIENT
  Age: 27 Year
  Sex: Female

DRUGS (3)
  1. MIRENA [Suspect]
     Active Substance: LEVONORGESTREL
     Indication: DYSFUNCTIONAL UTERINE BLEEDING
     Dosage: 20 MCG/24HR, CONT
     Route: 015
  2. CYPROTERONE ACETATE [IN FEMALE] [Suspect]
     Active Substance: CYPROTERONE ACETATE
     Indication: DYSFUNCTIONAL UTERINE BLEEDING
  3. ETHINYLESTRADIOL [Suspect]
     Active Substance: ETHINYL ESTRADIOL
     Indication: DYSFUNCTIONAL UTERINE BLEEDING

REACTIONS (7)
  - Off label use [None]
  - Device allergy [None]
  - Drug ineffective for unapproved indication [None]
  - Device expulsion [None]
  - Off label use of device [None]
  - Product use in unapproved indication [None]
  - Peritoneal effluent leukocyte count increased [None]
